FAERS Safety Report 24919356 (Version 1)
Quarter: 2025Q1

REPORT INFORMATION
  Report Type: Other
  Country: US (occurrence: US)
  Receive Date: 20250204
  Receipt Date: 20250204
  Transmission Date: 20250409
  Serious: Yes (Hospitalization)
  Sender: ANI
  Company Number: US-ANIPHARMA-015524

PATIENT
  Age: 12 Year
  Sex: Female

DRUGS (8)
  1. LORAZEPAM [Suspect]
     Active Substance: LORAZEPAM
     Indication: Malignant catatonia
     Route: 042
  2. RISPERIDONE [Suspect]
     Active Substance: RISPERIDONE
     Indication: Psychotic disorder
  3. OLANZAPINE [Concomitant]
     Active Substance: OLANZAPINE
     Indication: Psychotic disorder
  4. METHYLPREDNISOLONE [Concomitant]
     Active Substance: METHYLPREDNISOLONE
     Indication: Encephalitis autoimmune
  5. PREDNISONE [Concomitant]
     Active Substance: PREDNISONE
     Indication: Encephalitis autoimmune
  6. RITUXIMAB [Concomitant]
     Active Substance: RITUXIMAB
     Indication: Encephalitis autoimmune
  7. IMMUNE GLOBULIN [Concomitant]
     Indication: Encephalitis autoimmune
  8. OLANZAPINE [Concomitant]
     Active Substance: OLANZAPINE
     Indication: Psychotic disorder

REACTIONS (7)
  - Drug intolerance [Unknown]
  - Hypophagia [Recovering/Resolving]
  - Freezing phenomenon [Recovering/Resolving]
  - Paradoxical drug reaction [Unknown]
  - Drug ineffective [Unknown]
  - Aggression [Recovering/Resolving]
  - Tremor [Recovering/Resolving]
